FAERS Safety Report 6127984-8 (Version None)
Quarter: 2009Q1

REPORT INFORMATION
  Report Type: 
  Country: None (occurrence: None)
  Receive Date: 20090323
  Receipt Date: 20090312
  Transmission Date: 20090719
  Serious: Yes (Life-Threatening)
  Sender: FDA-Public Use
  Company Number: CH-BAYER-200916161GPV

PATIENT

DRUGS (1)
  1. ULTRAVIST 370 [Suspect]
     Indication: COMPUTERISED TOMOGRAM

REACTIONS (1)
  - UNEVALUABLE EVENT [None]
